FAERS Safety Report 7997422-9 (Version None)
Quarter: 2011Q4

REPORT INFORMATION
  Report Type: 
  Country: None (occurrence: None)
  Receive Date: 20111221
  Receipt Date: 20111216
  Transmission Date: 20120403
  Serious: Yes (Other)
  Sender: FDA-Public Use
  Company Number: CN-PFIZER INC-2011308541

PATIENT
  Age: 55 Year
  Sex: Female

DRUGS (5)
  1. SOLU-MEDROL [Suspect]
     Dosage: UNK
     Dates: start: 20111101
  2. CYCLOPHOSPHAMIDE [Concomitant]
     Indication: GLOMERULONEPHRITIS MEMBRANOUS
     Dosage: 1G, EVERY ONE MONTH
     Dates: start: 20110401, end: 20111001
  3. CYCLOPHOSPHAMIDE [Concomitant]
     Dosage: 0.6G
     Dates: start: 20111101
  4. SOLU-MEDROL [Suspect]
     Indication: GLOMERULONEPHRITIS MEMBRANOUS
     Dosage: UNK
     Dates: start: 20110201, end: 20110101
  5. SOLU-MEDROL [Suspect]
     Dosage: 20 MG, DAILY
     Dates: start: 20110101, end: 20110101

REACTIONS (2)
  - DRUG EFFECT DECREASED [None]
  - LUNG INFECTION [None]
